FAERS Safety Report 19090935 (Version 2)
Quarter: 2021Q2

REPORT INFORMATION
  Report Type: Spontaneous
  Country: US (occurrence: US)
  Receive Date: 20210405
  Receipt Date: 20210405
  Transmission Date: 20210717
  Serious: No
  Sender: FDA-Public Use
  Company Number: US-ACCORD-196871

PATIENT
  Age: 65 Year
  Sex: Female

DRUGS (1)
  1. CARBIDOPA/LEVODOPA [Suspect]
     Active Substance: CARBIDOPA\LEVODOPA
     Indication: RESTLESS LEGS SYNDROME
     Dosage: STRENGTH: 50/200 MG AT BEDTIME
     Route: 048
     Dates: start: 201912

REACTIONS (7)
  - Dyskinesia [Unknown]
  - Sensory disturbance [Unknown]
  - Pruritus [Unknown]
  - Condition aggravated [Unknown]
  - Anxiety [Unknown]
  - Off label use [Unknown]
  - Formication [Unknown]

NARRATIVE: CASE EVENT DATE: 20200705
